FAERS Safety Report 21391059 (Version 1)
Quarter: 2022Q3

REPORT INFORMATION
  Report Type: Spontaneous
  Country: US (occurrence: US)
  Receive Date: 20220929
  Receipt Date: 20220929
  Transmission Date: 20221026
  Serious: Yes (Hospitalization, Other)
  Sender: FDA-Public Use
  Company Number: US-PFIZER INC-PV202200065030

PATIENT
  Age: 13 Year
  Sex: Female
  Weight: 68 kg

DRUGS (2)
  1. CEFEPIME HYDROCHLORIDE [Suspect]
     Active Substance: CEFEPIME HYDROCHLORIDE
     Indication: Bacteraemia
     Dosage: 2 G, 3X/DAY (EVERY EIGHT HOURS)
     Route: 042
  2. CEFEPIME HYDROCHLORIDE [Suspect]
     Active Substance: CEFEPIME HYDROCHLORIDE
     Indication: Evidence based treatment

REACTIONS (3)
  - Encephalopathy [Recovered/Resolved]
  - Status epilepticus [Recovered/Resolved]
  - Neurotoxicity [Recovered/Resolved]
